FAERS Safety Report 23859267 (Version 1)
Quarter: 2024Q2

REPORT INFORMATION
  Report Type: Spontaneous
  Country: CN (occurrence: CN)
  Receive Date: 20240515
  Receipt Date: 20240515
  Transmission Date: 20240716
  Serious: Yes (Hospitalization, Other)
  Sender: FDA-Public Use
  Company Number: None

PATIENT
  Age: 73 Year
  Sex: Female
  Weight: 60 kg

DRUGS (6)
  1. CYCLOPHOSPHAMIDE [Suspect]
     Active Substance: CYCLOPHOSPHAMIDE
     Indication: Gastric cancer
     Dosage: 1 G, ONE TIME IN ONE DAY, D1, DILUTED WITH 500 ML OF SODIUM CHLORIDE, AS A PART OF R-70%CHOP REGIMEN
     Route: 041
     Dates: start: 20240424, end: 20240424
  2. SODIUM CHLORIDE [Suspect]
     Active Substance: SODIUM CHLORIDE
     Indication: Gastric cancer
     Dosage: 500 ML, ONE TIME IN ONE DAY, D1, USED TO DILUTE 1 G OF CYCLOPHOSPHAMIDE
     Route: 041
     Dates: start: 20240424, end: 20240424
  3. EPIRUBICIN HYDROCHLORIDE [Suspect]
     Active Substance: EPIRUBICIN HYDROCHLORIDE
     Indication: Gastric cancer
     Dosage: 90 MG, ONE TIME IN ONE DAY, D1, AS A PART OF R-70%CHOP REGIMEN
     Route: 041
     Dates: start: 20240424, end: 20240424
  4. VINDESINE SULFATE [Suspect]
     Active Substance: VINDESINE SULFATE
     Indication: Gastric cancer
     Dosage: 4 MG, ONE TIME IN ONE DAY, D1, AS A PART OF R-70%CHOP REGIMEN
     Route: 041
     Dates: start: 20240424, end: 20240424
  5. RITUXIMAB [Suspect]
     Active Substance: RITUXIMAB
     Indication: Gastric cancer
     Dosage: 600 MG, D0, AS A PART OF R-70%CHOP REGIMEN
     Route: 065
     Dates: start: 20240423
  6. DEXAMETHASONE [Suspect]
     Active Substance: DEXAMETHASONE
     Indication: Gastric cancer
     Dosage: 15 MG, FOR 5 DAYS, AS A PART OF R-70%CHOP REGIMEN
     Route: 065
     Dates: start: 20240424, end: 20240428

REACTIONS (13)
  - Gastric cancer [Unknown]
  - Condition aggravated [Unknown]
  - Myelosuppression [Unknown]
  - Granulocytopenia [Unknown]
  - Asthenia [Unknown]
  - Nausea [Unknown]
  - Vomiting [Unknown]
  - Regurgitation [Recovering/Resolving]
  - Discomfort [Recovering/Resolving]
  - Dyspepsia [Recovering/Resolving]
  - Abdominal discomfort [Unknown]
  - Abdominal pain [Not Recovered/Not Resolved]
  - Diarrhoea [Unknown]

NARRATIVE: CASE EVENT DATE: 20240505
